FAERS Safety Report 22804466 (Version 2)
Quarter: 2023Q4

REPORT INFORMATION
  Report Type: Spontaneous
  Country: CN (occurrence: CN)
  Receive Date: 20230809
  Receipt Date: 20231006
  Transmission Date: 20240110
  Serious: Yes (Life-Threatening, Other)
  Sender: FDA-Public Use
  Company Number: CN-BAYER-2023A111866

PATIENT
  Age: 57 Year
  Sex: Male
  Weight: 68 kg

DRUGS (1)
  1. ULTRAVIST [Suspect]
     Active Substance: IOPROMIDE
     Indication: Scan with contrast
     Dosage: 77 ML, ONCE
     Route: 042
     Dates: start: 20230804, end: 20230804

REACTIONS (7)
  - Anaphylactic shock [Recovering/Resolving]
  - Blood pressure decreased [Recovering/Resolving]
  - Seizure [None]
  - Hyperhidrosis [None]
  - Chest discomfort [Recovering/Resolving]
  - Dyspnoea [Recovering/Resolving]
  - Erythema [None]

NARRATIVE: CASE EVENT DATE: 20230804
